FAERS Safety Report 6133487-7 (Version None)
Quarter: 2009Q1

REPORT INFORMATION
  Report Type: 
  Country: None (occurrence: None)
  Receive Date: 20090326
  Receipt Date: 20070316
  Transmission Date: 20090719
  Serious: Yes (Hospitalization, Other)
  Sender: FDA-Public Use
  Company Number: US-ASTRAZENECA-2006UW07042

PATIENT
  Age: 18121 Day
  Sex: Male
  Weight: 131.5 kg

DRUGS (37)
  1. SEROQUEL [Suspect]
     Indication: BIPOLAR DISORDER
     Dosage: 5 MG TO 800 MG PER DAY
     Route: 048
     Dates: start: 20020605, end: 20060501
  2. KEFLEX [Interacting]
  3. RISPERDAL [Concomitant]
     Dates: start: 20010102, end: 20010125
  4. ZYPREXA [Concomitant]
     Dates: start: 20001115, end: 20020605
  5. CLONAZEPAM [Concomitant]
  6. ZOLOFT [Concomitant]
  7. XENICAL [Concomitant]
  8. ALLOPURINOL [Concomitant]
  9. DEPAKOTE [Concomitant]
  10. PROZAC [Concomitant]
  11. TESTOSTERONE CYPIONATE [Concomitant]
     Route: 030
  12. FELODIPINE [Concomitant]
  13. LEVOTHYROXINE SODIUM [Concomitant]
  14. INDOCIN [Concomitant]
  15. TRAZODONE HCL [Concomitant]
  16. ACETAMINOPHEN [Concomitant]
  17. GABAPENTIN [Concomitant]
  18. SERTRALINE HCL [Concomitant]
  19. NORVASC [Concomitant]
  20. MOM [Concomitant]
  21. MOTRIN [Concomitant]
  22. ZOCOR [Concomitant]
  23. VISTARIL [Concomitant]
  24. LAMICTAL [Concomitant]
  25. CARDIZEM CD [Concomitant]
  26. LOVENOX [Concomitant]
  27. UNASYN [Concomitant]
  28. PANTOPRAZOLE SODIUM [Concomitant]
  29. LISINOPRIL [Concomitant]
  30. MULTI-VITAMIN [Concomitant]
  31. ASPIRIN [Concomitant]
  32. ZIPRASIDONE HCL [Concomitant]
     Dates: start: 20060501
  33. NIACIN [Concomitant]
  34. VIAGRA [Concomitant]
  35. GEMFIBROZIL [Concomitant]
  36. HYDROCHLOROTHIAZIDE [Concomitant]
  37. ZOLPIDEM TARTRATE [Concomitant]

REACTIONS (16)
  - ANAEMIA [None]
  - ARTHROPOD BITE [None]
  - BURSITIS INFECTIVE STAPHYLOCOCCAL [None]
  - CELLULITIS [None]
  - DIVERTICULITIS [None]
  - DIZZINESS [None]
  - FALL [None]
  - GAMMOPATHY [None]
  - HYPERPROTEINAEMIA [None]
  - PERITONITIS [None]
  - RENAL FAILURE [None]
  - ROTATOR CUFF SYNDROME [None]
  - SLEEP APNOEA SYNDROME [None]
  - SOMNOLENCE [None]
  - SUICIDAL IDEATION [None]
  - TYPE 2 DIABETES MELLITUS [None]
